FAERS Safety Report 5084934-3 (Version None)
Quarter: 2006Q3

REPORT INFORMATION
  Report Type: 
  Country: None (occurrence: None)
  Receive Date: 20060815
  Receipt Date: 20060728
  Transmission Date: 20061208
  Serious: Yes (Other)
  Sender: FDA-Public Use
  Company Number: ABMIT-06-0387

PATIENT
  Age: 53 Year
  Sex: Female
  Weight: 48.3081 kg

DRUGS (4)
  1. ABRAXANE [Suspect]
     Indication: BREAST CANCER METASTATIC
     Dosage: 260 MG (367 MG/M2, EVERY 3 WEEKS), INTRAVENOUS DRIP
     Route: 041
     Dates: start: 20050501, end: 20060615
  2. FOSAMAX [Concomitant]
  3. COMPAZINE [Concomitant]
  4. NEULASTA [Concomitant]

REACTIONS (1)
  - FACIAL PALSY [None]
